FAERS Safety Report 5163842-3 (Version None)
Quarter: 2006Q4

REPORT INFORMATION
  Report Type: 
  Country: None (occurrence: None)
  Receive Date: 20061124
  Receipt Date: 20061109
  Transmission Date: 20070319
  Serious: Yes (Other)
  Sender: FDA-Public Use
  Company Number: 2006140498

PATIENT
  Sex: Male

DRUGS (1)
  1. CELEBREX [Suspect]
     Indication: BACK INJURY
     Dosage: 100 MG (100 MG, 1 D), ORAL
     Route: 048
     Dates: start: 20000101

REACTIONS (4)
  - CARDIOVASCULAR DISORDER [None]
  - CEREBROVASCULAR DISORDER [None]
  - INJURY [None]
  - MYOCARDIAL INFARCTION [None]
